FAERS Safety Report 19914160 (Version 1)
Quarter: 2021Q4

REPORT INFORMATION
  Report Type: Spontaneous
  Country: US (occurrence: US)
  Receive Date: 20211005
  Receipt Date: 20211005
  Transmission Date: 20220303
  Serious: No
  Sender: FDA-Public Use
  Company Number: US-ACCORD-207507

PATIENT
  Sex: Female
  Weight: 68.04 kg

DRUGS (1)
  1. ESCITALOPRAM OXALATE [Suspect]
     Active Substance: ESCITALOPRAM OXALATE
     Indication: Anxiety
     Dosage: ONCE A DAY
     Route: 048
     Dates: start: 202010, end: 202010

REACTIONS (1)
  - Drug eruption [Recovered/Resolved]
